FAERS Safety Report 20710552 (Version 2)
Quarter: 2022Q2

REPORT INFORMATION
  Report Type: Spontaneous
  Country: US (occurrence: US)
  Receive Date: 20220414
  Receipt Date: 20220523
  Transmission Date: 20220721
  Serious: Yes (Death, Other)
  Sender: FDA-Public Use
  Company Number: US-MMM-M4G291KA

PATIENT

DRUGS (1)
  1. TRELEGY ELLIPTA [Suspect]
     Active Substance: FLUTICASONE FUROATE\UMECLIDINIUM BROMIDE\VILANTEROL TRIFENATATE
     Indication: Chronic obstructive pulmonary disease
     Dosage: UNK 100/62.5/25 MCG 30 INHALATIONS
     Route: 055
     Dates: start: 20210901, end: 20220321

REACTIONS (4)
  - Atrial fibrillation [Fatal]
  - Chronic obstructive pulmonary disease [Fatal]
  - Cardiac failure congestive [Unknown]
  - Coronary artery disease [Unknown]
